FAERS Safety Report 11875844 (Version 1)
Quarter: 2015Q4

REPORT INFORMATION
  Report Type: Spontaneous
  Country: US (occurrence: None)
  Receive Date: 20151228
  Receipt Date: 20151228
  Transmission Date: 20160305
  Serious: Yes (Other)
  Sender: FDA-Public Use
  Company Number: None

PATIENT
  Age: 38 Year
  Sex: Female

DRUGS (1)
  1. ENBREL [Suspect]
     Active Substance: ETANERCEPT
     Indication: ANKYLOSING SPONDYLITIS
     Route: 058
     Dates: start: 20150716, end: 20151125

REACTIONS (6)
  - Paraesthesia [None]
  - Therapy cessation [None]
  - Neuralgia [None]
  - Fungal infection [None]
  - Muscular weakness [None]
  - Memory impairment [None]

NARRATIVE: CASE EVENT DATE: 20150730
